FAERS Safety Report 6014297-8 (Version None)
Quarter: 2008Q4

REPORT INFORMATION
  Report Type: 
  Country: None (occurrence: None)
  Receive Date: 20081219
  Receipt Date: 20080331
  Transmission Date: 20090506
  Serious: No
  Sender: FDA-Public Use
  Company Number: A0718361A

PATIENT
  Age: 71 Year
  Sex: Male

DRUGS (3)
  1. AVODART [Suspect]
     Indication: BENIGN PROSTATIC HYPERPLASIA
     Dosage: 1CAPL PER DAY
     Route: 048
     Dates: start: 20070301, end: 20080321
  2. TOPROL-XL [Concomitant]
  3. ZESTRIL [Concomitant]

REACTIONS (2)
  - EJACULATION DISORDER [None]
  - SEMEN DISCOLOURATION [None]
